FAERS Safety Report 20814537 (Version 1)
Quarter: 2022Q2

REPORT INFORMATION
  Report Type: Spontaneous
  Country: BR (occurrence: BR)
  Receive Date: 20220511
  Receipt Date: 20220511
  Transmission Date: 20220720
  Serious: Yes (Other)
  Sender: FDA-Public Use
  Company Number: BR-TAKEDA-BR202015798

PATIENT
  Sex: Female
  Weight: 79 kg

DRUGS (6)
  1. LISDEXAMFETAMINE DIMESYLATE [Suspect]
     Active Substance: LISDEXAMFETAMINE DIMESYLATE
     Indication: Attention deficit hyperactivity disorder
     Dosage: 30 MILLIGRAM, QD
     Route: 065
     Dates: start: 2015
  2. LISDEXAMFETAMINE DIMESYLATE [Suspect]
     Active Substance: LISDEXAMFETAMINE DIMESYLATE
     Dosage: 70 MILLIGRAM, QD
     Route: 065
  3. LISDEXAMFETAMINE DIMESYLATE [Suspect]
     Active Substance: LISDEXAMFETAMINE DIMESYLATE
     Dosage: UNK
     Route: 048
     Dates: start: 20220312
  4. ETHINYL ESTRADIOL\GESTODENE [Concomitant]
     Active Substance: ETHINYL ESTRADIOL\GESTODENE
     Indication: Contraception
     Dosage: 0.075 MILLIGRAM, QD
     Route: 048
  5. ETHINYL ESTRADIOL\GESTODENE [Concomitant]
     Active Substance: ETHINYL ESTRADIOL\GESTODENE
     Dosage: 0.02 MILLIGRAM, QD
     Route: 048
  6. EUTHYROX [Concomitant]
     Active Substance: LEVOTHYROXINE SODIUM
     Indication: Hypothyroidism
     Dosage: 100 MICROGRAM, QD

REACTIONS (18)
  - Narcolepsy [Unknown]
  - Emotional distress [Unknown]
  - Ill-defined disorder [Unknown]
  - Impaired quality of life [Unknown]
  - Therapy interrupted [Unknown]
  - Adverse drug reaction [Unknown]
  - Sleep deficit [Unknown]
  - Gastritis [Unknown]
  - Ventricular extrasystoles [Unknown]
  - Tachycardia [Unknown]
  - Headache [Unknown]
  - Somnolence [Unknown]
  - Irritability [Unknown]
  - Affect lability [Unknown]
  - Logorrhoea [Unknown]
  - Decreased appetite [Unknown]
  - Dry mouth [Unknown]
  - Product availability issue [Unknown]
